FAERS Safety Report 8713290 (Version 5)
Quarter: 2013Q2

REPORT INFORMATION
  Report Type: Spontaneous
  Country: US (occurrence: US)
  Receive Date: 20120808
  Receipt Date: 20130425
  Transmission Date: 20140414
  Serious: Yes (Hospitalization)
  Sender: FDA-Public Use
  Company Number: US-B.I. PHARMACEUTICALS,INC./RIDGEFIELD-2012-BP-17199BP

PATIENT
  Age: 75 Year
  Sex: Male
  Weight: 92.99 kg

DRUGS (6)
  1. PRADAXA [Suspect]
     Indication: ATRIAL FIBRILLATION
     Dosage: 300 MG
     Route: 048
     Dates: start: 20111224, end: 20120320
  2. LISINOPRIL [Concomitant]
     Dosage: 40 MG
     Route: 048
     Dates: start: 2010
  3. METOPROLOL [Concomitant]
     Dosage: 100 MG
     Route: 048
     Dates: start: 2010
  4. ASPIRIN [Concomitant]
     Dosage: 81 MG
     Dates: start: 2010
  5. HYDROCHLOROTHIAZIDE [Concomitant]
     Dosage: 12.5 MG
     Route: 048
  6. ACETAMINOPHEN-OXYCODONE [Concomitant]
     Route: 048

REACTIONS (2)
  - Post procedural haemorrhage [Recovered/Resolved]
  - Rectal haemorrhage [Unknown]
